FAERS Safety Report 12810160 (Version 1)
Quarter: 2016Q4

REPORT INFORMATION
  Report Type: Spontaneous
  Country: US (occurrence: US)
  Receive Date: 20161005
  Receipt Date: 20161005
  Transmission Date: 20170207
  Serious: No
  Sender: FDA-Public Use
  Company Number: US-PFIZER INC-2016462690

PATIENT
  Age: 88 Year
  Weight: 77.56 kg

DRUGS (1)
  1. VIAGRA [Suspect]
     Active Substance: SILDENAFIL CITRATE
     Indication: ERECTILE DYSFUNCTION
     Dosage: 100 MG, TABLET, ONCE A DAY
     Route: 048
     Dates: start: 201609, end: 20161003

REACTIONS (1)
  - Drug ineffective [Unknown]
